FAERS Safety Report 7503932-0 (Version None)
Quarter: 2011Q2

REPORT INFORMATION
  Report Type: 
  Country: None (occurrence: None)
  Receive Date: 20110401
  Receipt Date: 20101115
  Transmission Date: 20111010
  Serious: Yes (Death, Hospitalization)
  Sender: FDA-Public Use
  Company Number: 246923USA

PATIENT
  Sex: Male

DRUGS (6)
  1. RANITIDINE [Concomitant]
  2. CARBOPLATIN [Suspect]
     Indication: SMALL CELL LUNG CANCER STAGE UNSPECIFIED
     Dosage: (576 MG)
  3. DEXAMETHASONE [Concomitant]
  4. ONDANSETRON [Concomitant]
  5. ETOPOSIDE [Suspect]
     Indication: SMALL CELL LUNG CANCER STAGE UNSPECIFIED
     Dosage: (208 MG)
  6. DIPHENHYDRAMINE HCL [Concomitant]

REACTIONS (3)
  - NEUTROPENIA [None]
  - HYPOTENSION [None]
  - SEPSIS [None]
